FAERS Safety Report 22071393 (Version 1)
Quarter: 2023Q1

REPORT INFORMATION
  Report Type: Report from Study
  Country: BR (occurrence: None)
  Receive Date: 20230307
  Receipt Date: 20230307
  Transmission Date: 20230417
  Serious: Yes (Other)
  Sender: FDA-Public Use
  Company Number: BR-Merck Healthcare KGaA-9320323

PATIENT
  Age: 31 Year
  Sex: Female

DRUGS (4)
  1. INTERFERON BETA-1A [Suspect]
     Active Substance: INTERFERON BETA-1A
     Indication: Multiple sclerosis
     Route: 058
     Dates: start: 20210920
  2. IRON [Concomitant]
     Active Substance: IRON
     Indication: Product used for unknown indication
  3. FOLIC ACID [Concomitant]
     Active Substance: FOLIC ACID
     Indication: Product used for unknown indication
  4. ERGOCALCIFEROL [Concomitant]
     Active Substance: ERGOCALCIFEROL
     Indication: Product used for unknown indication

REACTIONS (6)
  - Premature rupture of membranes [Recovered/Resolved]
  - Cervix dystocia [Recovered/Resolved]
  - Lactation disorder [Unknown]
  - Normal newborn [Recovered/Resolved]
  - Maternal exposure during breast feeding [Not Recovered/Not Resolved]
  - Maternal exposure during pregnancy [Recovered/Resolved]

NARRATIVE: CASE EVENT DATE: 20220101
